FAERS Safety Report 7086145-9 (Version None)
Quarter: 2010Q4

REPORT INFORMATION
  Report Type: 
  Country: None (occurrence: None)
  Receive Date: 20101001
  Receipt Date: 20090924
  Transmission Date: 20110411
  Serious: Yes (Hospitalization, Other)
  Sender: FDA-Public Use
  Company Number: US-WYE-H11203209

PATIENT
  Age: 52 Year
  Sex: Female
  Weight: 143.01 kg

DRUGS (4)
  1. PREMARIN [Suspect]
     Indication: DYSFUNCTIONAL UTERINE BLEEDING
     Dosage: 25 MG 1X PER 6 HR, INTRAVENOUS
     Route: 042
     Dates: start: 20090922
  2. LISINOPRIL [Concomitant]
  3. LIPITOR [Concomitant]
  4. METFORMIN HCL [Concomitant]

REACTIONS (1)
  - DRUG INEFFECTIVE [None]
